FAERS Safety Report 5030447-4 (Version None)
Quarter: 2006Q2

REPORT INFORMATION
  Report Type: 
  Country: None (occurrence: None)
  Receive Date: 20060614
  Receipt Date: 20060601
  Transmission Date: 20061013
  Serious: Yes (Hospitalization)
  Sender: FDA-Public Use
  Company Number: DEWYE676801JUN06

PATIENT
  Age: 17 Year
  Sex: Female

DRUGS (3)
  1. VENLAFAXINE HCL [Suspect]
     Dosage: 7 TABLETS (OVERDOSE AMOUNT 262,5 MG) ORAL
     Route: 048
     Dates: start: 20060531, end: 20060531
  2. ASPIRIN [Suspect]
     Dosage: 6 TABLETS (OVERDOSE AMOUNT 3000 MG) ORAL
     Route: 048
     Dates: start: 20060531, end: 20060531
  3. IBUPROFEN [Suspect]
     Dosage: 6-7 TABLETS ORAL
     Route: 048
     Dates: start: 20060531, end: 20060531

REACTIONS (4)
  - DIZZINESS [None]
  - MULTIPLE DRUG OVERDOSE INTENTIONAL [None]
  - NAUSEA [None]
  - SUICIDE ATTEMPT [None]
